FAERS Safety Report 12173421 (Version 3)
Quarter: 2016Q2

REPORT INFORMATION
  Report Type: Spontaneous
  Country: US (occurrence: US)
  Receive Date: 20160311
  Receipt Date: 20160608
  Transmission Date: 20160815
  Serious: Yes (Other)
  Sender: FDA-Public Use
  Company Number: US-ALLERGAN-1638312US

PATIENT
  Age: 84 Year
  Sex: Female
  Weight: 67.12 kg

DRUGS (1)
  1. LUMIGAN [Suspect]
     Active Substance: BIMATOPROST
     Indication: GLAUCOMA
     Dosage: 1 GTT, SINGLE
     Route: 047
     Dates: start: 20151014, end: 20151014

REACTIONS (5)
  - Eye swelling [Recovered/Resolved]
  - Glaucoma surgery [Not Recovered/Not Resolved]
  - Vomiting [Recovered/Resolved]
  - Eye infection [Recovered/Resolved]
  - Eye irritation [Recovered/Resolved]

NARRATIVE: CASE EVENT DATE: 20151014
